FAERS Safety Report 7072587-4 (Version None)
Quarter: 2010Q4

REPORT INFORMATION
  Report Type: 
  Country: None (occurrence: None)
  Receive Date: 20101029
  Receipt Date: 20100519
  Transmission Date: 20110411
  Serious: No
  Sender: FDA-Public Use
  Company Number: A0844724A

PATIENT
  Age: 56 Year
  Sex: Female

DRUGS (21)
  1. ADVAIR DISKUS 100/50 [Suspect]
     Indication: ASTHMA
     Dosage: 1PUFF TWICE PER DAY
     Route: 055
     Dates: start: 20100118
  2. NEXIUM [Concomitant]
  3. MUCINEX DM [Concomitant]
  4. UNSPECIFIED MEDICATION [Concomitant]
  5. LITHIUM [Concomitant]
  6. LAMICTAL [Concomitant]
  7. PROPRANOLOL [Concomitant]
  8. KLONOPIN [Concomitant]
  9. VITAMIN D [Concomitant]
  10. VITAMIN B-12 [Concomitant]
  11. SINGULAIR [Concomitant]
  12. TRAZODONE [Concomitant]
  13. VERAMYST [Concomitant]
  14. RESTASIS [Concomitant]
  15. ARTIFICIAL TEARS [Concomitant]
  16. UNSPECIFIED MEDICATION [Concomitant]
  17. OCEAN NASAL SPRAY [Concomitant]
  18. FLUCONAZOLE [Concomitant]
  19. POTASSIUM CHLORIDE [Concomitant]
  20. VERAMYST [Concomitant]
  21. CLARITIN [Concomitant]

REACTIONS (3)
  - CONSTIPATION [None]
  - FUNGAL SKIN INFECTION [None]
  - URINE ABNORMALITY [None]
